FAERS Safety Report 19723870 (Version 1)
Quarter: 2021Q3

REPORT INFORMATION
  Report Type: Report from Study
  Country: US (occurrence: US)
  Receive Date: 20210820
  Receipt Date: 20210820
  Transmission Date: 20211014
  Serious: No
  Sender: FDA-Public Use
  Company Number: US-ACADIA PHARMACEUTICALS INC.-ACA-2021-PIM-002757

PATIENT
  Age: 68 Year
  Sex: Male
  Weight: 82 kg

DRUGS (7)
  1. MIRAPEX [Suspect]
     Active Substance: PRAMIPEXOLE DIHYDROCHLORIDE
     Dosage: UNK
     Dates: start: 2001, end: 20210713
  2. NUPLAZID [Suspect]
     Active Substance: PIMAVANSERIN TARTRATE
     Indication: PARKINSON^S DISEASE PSYCHOSIS
     Dosage: 34 MILLIGRAM, QD
     Route: 048
     Dates: start: 20210722, end: 20210723
  3. CARBIDOPA. [Concomitant]
     Active Substance: CARBIDOPA
  4. LISINOPRIL. [Concomitant]
     Active Substance: LISINOPRIL
     Dosage: 2.5 MG
  5. NUPLAZID [Suspect]
     Active Substance: PIMAVANSERIN TARTRATE
     Indication: HALLUCINATION
  6. NUPLAZID [Suspect]
     Active Substance: PIMAVANSERIN TARTRATE
     Indication: DELUSION
  7. EYE DROPS [NAPHAZOLINE HYDROCHLORIDE] [Concomitant]

REACTIONS (14)
  - Dysstasia [Unknown]
  - Fall [Unknown]
  - Balance disorder [Unknown]
  - Muscular weakness [Unknown]
  - Increased appetite [Unknown]
  - Incontinence [Unknown]
  - Heart rate irregular [Unknown]
  - Delusion [Unknown]
  - Confusional state [Unknown]
  - Fatigue [Unknown]
  - Enuresis [Unknown]
  - Somnolence [Unknown]
  - Contusion [Unknown]
  - Hallucination, visual [Unknown]

NARRATIVE: CASE EVENT DATE: 202107
